FAERS Safety Report 21726244 (Version 2)
Quarter: 2022Q4

REPORT INFORMATION
  Report Type: Spontaneous
  Country: US (occurrence: US)
  Receive Date: 20221214
  Receipt Date: 20221220
  Transmission Date: 20230113
  Serious: Yes (Hospitalization, Other)
  Sender: FDA-Public Use
  Company Number: US-drreddys-SPO/USA/22/0158145

PATIENT
  Age: 18 Year
  Sex: Female

DRUGS (5)
  1. LURASIDONE [Suspect]
     Active Substance: LURASIDONE
     Indication: Depression
  2. METFORMIN [Suspect]
     Active Substance: METFORMIN HYDROCHLORIDE
     Indication: Diabetes mellitus
  3. ETHINYL ESTRADIOL\NORGESTIMATE [Suspect]
     Active Substance: ETHINYL ESTRADIOL\NORGESTIMATE
     Indication: Polycystic ovaries
  4. INSULIN NOS [Suspect]
     Active Substance: INSULIN NOS
     Indication: Diabetes mellitus
  5. SERTRALINE [Suspect]
     Active Substance: SERTRALINE HYDROCHLORIDE
     Indication: Product used for unknown indication

REACTIONS (6)
  - Metabolic acidosis [Recovered/Resolved]
  - Leukocytosis [Unknown]
  - Hypertriglyceridaemia [Recovering/Resolving]
  - Tachypnoea [Recovered/Resolved]
  - Escherichia urinary tract infection [Unknown]
  - Tachycardia [Recovered/Resolved]
